FAERS Safety Report 23776144 (Version 1)
Quarter: 2024Q2

REPORT INFORMATION
  Report Type: Spontaneous
  Country: FR (occurrence: FR)
  Receive Date: 20240424
  Receipt Date: 20240424
  Transmission Date: 20240717
  Serious: Yes (Other)
  Sender: FDA-Public Use
  Company Number: FR-CELLTRION INC.-2024FR009283

PATIENT

DRUGS (18)
  1. RITUXIMAB [Suspect]
     Active Substance: RITUXIMAB
     Indication: Central nervous system lymphoma
     Dosage: C1J1
     Route: 042
     Dates: start: 20201230, end: 20201230
  2. RITUXIMAB [Suspect]
     Active Substance: RITUXIMAB
     Dosage: C2J1
     Route: 042
     Dates: start: 20210208, end: 20210208
  3. RITUXIMAB [Suspect]
     Active Substance: RITUXIMAB
     Dosage: C2J15
     Route: 042
     Dates: start: 20210222, end: 20210222
  4. PRIMPERAN [Suspect]
     Active Substance: METOCLOPRAMIDE HYDROCHLORIDE
     Indication: Nausea
  5. METHOTREXATE SODIUM [Suspect]
     Active Substance: METHOTREXATE SODIUM
     Indication: Central nervous system lymphoma
     Dosage: C1J1
     Route: 042
     Dates: start: 20201230, end: 20201230
  6. METHOTREXATE SODIUM [Suspect]
     Active Substance: METHOTREXATE SODIUM
     Dosage: C2J15
     Route: 042
     Dates: start: 20210222, end: 20210222
  7. METHOTREXATE SODIUM [Suspect]
     Active Substance: METHOTREXATE SODIUM
     Dosage: C2J1
     Route: 042
     Dates: start: 20210208, end: 20210208
  8. VINCRISTINE [Suspect]
     Active Substance: VINCRISTINE
     Indication: Central nervous system lymphoma
     Dosage: C2J1
     Route: 042
     Dates: start: 20210208, end: 20210208
  9. VINCRISTINE [Suspect]
     Active Substance: VINCRISTINE
     Dosage: C2J15
     Route: 042
     Dates: start: 20210222, end: 20210222
  10. VINCRISTINE [Suspect]
     Active Substance: VINCRISTINE
     Dosage: C1J1
     Route: 042
     Dates: start: 20201230, end: 20201230
  11. PROCARBAZINE HYDROCHLORIDE [Suspect]
     Active Substance: PROCARBAZINE HYDROCHLORIDE
     Indication: Central nervous system lymphoma
     Dosage: C1J1
     Route: 042
     Dates: start: 20201230, end: 20201230
  12. PROCARBAZINE HYDROCHLORIDE [Suspect]
     Active Substance: PROCARBAZINE HYDROCHLORIDE
     Dosage: C2J15
     Route: 042
     Dates: start: 20210222, end: 20210222
  13. PROCARBAZINE HYDROCHLORIDE [Suspect]
     Active Substance: PROCARBAZINE HYDROCHLORIDE
     Dosage: C2J1
     Route: 042
     Dates: start: 20210208, end: 20210208
  14. ACETAMINOPHEN [Concomitant]
     Active Substance: ACETAMINOPHEN
     Indication: Pain
  15. MELATONIN [Concomitant]
     Active Substance: MELATONIN
     Indication: Insomnia
  16. LEVETIRACETAM [Concomitant]
     Active Substance: LEVETIRACETAM
     Indication: Product used for unknown indication
  17. CALCIUM CARBONATE\CHOLECALCIFEROL [Concomitant]
     Active Substance: CALCIUM CARBONATE\CHOLECALCIFEROL
     Indication: Hypocalcaemia
  18. INNOHEP [Concomitant]
     Active Substance: TINZAPARIN SODIUM
     Indication: Product used for unknown indication

REACTIONS (1)
  - Hepatic cytolysis [Recovered/Resolved]

NARRATIVE: CASE EVENT DATE: 20210111
